FAERS Safety Report 4881133-2 (Version None)
Quarter: 2005Q4

REPORT INFORMATION
  Report Type: 
  Country: None (occurrence: None)
  Receive Date: 20051223
  Receipt Date: 20050913
  Transmission Date: 20060501
  Serious: No
  Sender: FDA-Public Use
  Company Number: 05P-163-0311012-00

PATIENT
  Age: 74 Year
  Sex: Female
  Weight: 83.0083 kg

DRUGS (5)
  1. HUMIRA [Suspect]
     Indication: RHEUMATOID ARTHRITIS
     Dosage: 40  MG, 1 IN 2 WK, SUBCUTANEOUS
     Route: 058
     Dates: start: 20040101
  2. METHYLTREXATE [Concomitant]
  3. IBUPROFEN [Concomitant]
  4. TYLENOL W/ CODEINE NO. 3 [Concomitant]
  5. FOLIC ACID [Concomitant]

REACTIONS (5)
  - GINGIVAL DISORDER [None]
  - NIGHT SWEATS [None]
  - PHARYNGOLARYNGEAL PAIN [None]
  - RASH PRURITIC [None]
  - TONGUE DISORDER [None]
